FAERS Safety Report 14202597 (Version 1)
Quarter: 2017Q4

REPORT INFORMATION
  Report Type: Other
  Country: GB (occurrence: US)
  Receive Date: 20171118
  Receipt Date: 20171118
  Transmission Date: 20180321
  Serious: Yes (Life-Threatening, Other)
  Sender: FDA-Public Use
  Company Number: US-INTERNATIONAL MEDICATION SYSTEMS, LIMITED-2034580

PATIENT
  Age: 15 Year
  Sex: Female

DRUGS (21)
  1. AMIODARONE [Suspect]
     Active Substance: AMIODARONE
  2. ANTITHYMOCYTE IMMUNOGLOBULIN [Concomitant]
     Active Substance: THYMOCYTE IMMUNE GLOBULIN NOS
  3. PREDNISONE. [Concomitant]
     Active Substance: PREDNISONE
  4. MERCAPTOPURINE. [Concomitant]
     Active Substance: MERCAPTOPURINE
  5. LIDOCAINE. [Suspect]
     Active Substance: LIDOCAINE
     Indication: VENTRICULAR FIBRILLATION
  6. CYCLOPHOSPHAMIDE. [Concomitant]
     Active Substance: CYCLOPHOSPHAMIDE
  7. CYTARABINE. [Concomitant]
     Active Substance: CYTARABINE
  8. SULFAMETHOXAZOLE, TRIMETHOPRIM [Concomitant]
     Active Substance: SULFAMETHOXAZOLE\TRIMETHOPRIM
  9. TACROLIMUS. [Concomitant]
     Active Substance: TACROLIMUS
  10. URSODEOXYCHOLIC ACID [Concomitant]
     Active Substance: URSODIOL
  11. CLOFARABINE. [Concomitant]
     Active Substance: CLOFARABINE
  12. CIDOFOVIR. [Concomitant]
     Active Substance: CIDOFOVIR
  13. ASPARAGINASE [Concomitant]
     Active Substance: ASPARAGINASE
  14. CASPOFUNGIN [Concomitant]
     Active Substance: CASPOFUNGIN
  15. IMMUNGLOBULIN (IVIG) [Concomitant]
     Active Substance: HUMAN IMMUNOGLOBULIN G
     Route: 042
  16. DAUNORUBICIN [Concomitant]
     Active Substance: DAUNORUBICIN
  17. VINCRISTINE [Concomitant]
     Active Substance: VINCRISTINE
  18. BUSULFAN. [Concomitant]
     Active Substance: BUSULFAN
  19. FLUDARABINE [Concomitant]
     Active Substance: FLUDARABINE PHOSPHATE
  20. ACICLOVIR [Concomitant]
     Active Substance: ACYCLOVIR
  21. METHOTREXATE. [Concomitant]
     Active Substance: METHOTREXATE

REACTIONS (1)
  - Drug ineffective [Unknown]
